FAERS Safety Report 7764735-5 (Version None)
Quarter: 2011Q3

REPORT INFORMATION
  Report Type: 
  Country: None (occurrence: None)
  Receive Date: 20110921
  Receipt Date: 20110919
  Transmission Date: 20111222
  Serious: Yes (Hospitalization)
  Sender: FDA-Public Use
  Company Number: US-BRACCO-006763

PATIENT
  Age: 73 Year
  Sex: Female
  Weight: 98 kg

DRUGS (22)
  1. ALL OTHER THERAPEUTIC PRODUCTS [Suspect]
     Dosage: FROM 16:14 TO 18:19
     Route: 041
     Dates: start: 20110804, end: 20110804
  2. ROSUVASTATIN [Concomitant]
     Dates: start: 20070817
  3. ALL OTHER THERAPEUTIC PRODUCTS [Suspect]
     Dosage: 4  POST-INFUSION CAPSULES GIVEN AT 18:23
     Route: 048
     Dates: start: 20110804, end: 20110804
  4. CELEBREX [Concomitant]
     Dates: start: 20070817
  5. VITAMIN B-12 [Concomitant]
     Dates: start: 20060109
  6. METFORMIN HCL [Concomitant]
     Dates: start: 20070817
  7. HEPARIN [Concomitant]
     Dosage: POST PROCEDURE
     Dates: start: 20110804
  8. CLOPIDOGREL [Concomitant]
     Dosage: AT DISCHARGE
  9. FUROSEMIDE [Concomitant]
     Dates: start: 20080911
  10. GLYBURIDE [Concomitant]
     Dates: start: 20070817
  11. ALL OTHER THERAPEUTIC PRODUCTS [Suspect]
     Dosage: 4 LOADING DOSE CAPSULES AT 16:12
     Route: 048
     Dates: start: 20110804, end: 20110804
  12. ASPIRIN [Concomitant]
     Dosage: PRIOR TO RANDOMIZATION
  13. ASPIRIN [Concomitant]
     Dosage: AT DISCHARGE
  14. SIMVASTATIN [Concomitant]
     Dates: start: 20101019
  15. DIOVAN [Concomitant]
     Dates: start: 20110119
  16. ASPIRIN [Concomitant]
     Dosage: POST PROCEDURE
     Dates: start: 20110804
  17. FOSAMAX [Concomitant]
     Dates: start: 20070817
  18. HEPARIN [Concomitant]
     Dosage: PRE AND DURING THE PROCEDURE
     Dates: start: 20110804, end: 20110804
  19. ISOVUE-370 [Suspect]
     Indication: ANGIOGRAM
     Dosage: ADMINISTERED FROM15:33 TO 16:46
     Route: 013
     Dates: start: 20110804, end: 20110804
  20. ALL OTHER THERAPEUTIC PRODUCTS [Suspect]
     Indication: PERCUTANEOUS CORONARY INTERVENTION
     Dosage: AT 16:09
     Route: 040
     Dates: start: 20110804, end: 20110804
  21. KLOR-CON [Concomitant]
     Dates: start: 20090911
  22. CLOPIDOGREL [Concomitant]
     Dosage: POST PROCEDURE
     Dates: start: 20110804

REACTIONS (2)
  - BLOOD CREATININE INCREASED [None]
  - RENAL INJURY [None]
